FAERS Safety Report 18867845 (Version 7)
Quarter: 2021Q4

REPORT INFORMATION
  Report Type: Report from Study
  Country: US (occurrence: US)
  Receive Date: 20210209
  Receipt Date: 20211103
  Transmission Date: 20220303
  Serious: Yes (Other)
  Sender: FDA-Public Use
  Company Number: US-GLAXOSMITHKLINE-US2020AMR237553

PATIENT
  Age: 77 Year
  Sex: Male

DRUGS (1)
  1. BELANTAMAB MAFODOTIN [Suspect]
     Active Substance: BELANTAMAB MAFODOTIN
     Indication: Product used for unknown indication
     Dosage: UNK

REACTIONS (7)
  - Punctate keratitis [Unknown]
  - Corneal cyst [Unknown]
  - Keratopathy [Unknown]
  - Visual acuity reduced [Recovered/Resolved]
  - Night blindness [Unknown]
  - Corneal deposits [Unknown]
  - Corneal scar [Unknown]

NARRATIVE: CASE EVENT DATE: 20201130
